FAERS Safety Report 13502107 (Version 3)
Quarter: 2018Q1

REPORT INFORMATION
  Report Type: Spontaneous
  Country: IT (occurrence: IT)
  Receive Date: 20170502
  Receipt Date: 20180220
  Transmission Date: 20180508
  Serious: Yes (Hospitalization, Other)
  Sender: FDA-Public Use
  Company Number: IT-BRISTOL-MYERS SQUIBB COMPANY-BMS-2017-034170

PATIENT
  Age: 74 Year
  Sex: Female
  Weight: 100 kg

DRUGS (8)
  1. PANTORC [Concomitant]
     Active Substance: PANTOPRAZOLE SODIUM
     Indication: CHRONIC GASTRITIS
     Dosage: 20 MG, UNK
     Route: 048
     Dates: start: 20080101
  2. FUROSEMIDE. [Concomitant]
     Active Substance: FUROSEMIDE
     Indication: HYPERTENSION
     Dosage: 50 MG, UNK
     Route: 065
     Dates: start: 20120101
  3. AMIODAR [Concomitant]
     Active Substance: AMIODARONE
     Indication: ATRIAL FIBRILLATION
     Dosage: 200 MG, UNK
     Route: 048
     Dates: start: 20080101
  4. LORTAAN [Concomitant]
     Active Substance: LOSARTAN POTASSIUM
     Indication: HYPERTENSION
     Dosage: 100 MG, UNK
     Route: 065
  5. COUMADIN [Suspect]
     Active Substance: WARFARIN SODIUM
     Indication: CARDIAC VALVE PROSTHESIS USER
     Dosage: 5 MG, QD
     Route: 048
     Dates: start: 20090101
  6. LUVION                             /00252501/ [Concomitant]
     Active Substance: CANRENOIC ACID
     Indication: HYPERTENSION
     Dosage: 50 MG, UNK
     Route: 048
     Dates: start: 20140101
  7. LENIZAK [Suspect]
     Active Substance: DEXKETOPROFEN\TRAMADOL
     Indication: BONE PAIN
     Dosage: 1 TAB, QD
     Route: 048
     Dates: start: 20170405, end: 20170407
  8. ESAPENT [Concomitant]
     Indication: DYSLIPIDAEMIA
     Dosage: 1000 MG, UNK
     Route: 048
     Dates: start: 20130101

REACTIONS (9)
  - Abdominal pain [Recovered/Resolved with Sequelae]
  - Intestinal haemorrhage [Recovered/Resolved with Sequelae]
  - Diverticulitis [Recovered/Resolved with Sequelae]
  - Diverticulum intestinal [Recovered/Resolved with Sequelae]
  - Packed red blood cell transfusion [Unknown]
  - Haemoglobin decreased [Recovered/Resolved with Sequelae]
  - Mass [Recovered/Resolved with Sequelae]
  - Infantile spitting up [Recovered/Resolved with Sequelae]
  - International normalised ratio increased [Unknown]

NARRATIVE: CASE EVENT DATE: 20170412
